FAERS Safety Report 10094044 (Version 2)
Quarter: 2014Q2

REPORT INFORMATION
  Report Type: Report from Study
  Country: KR (occurrence: KR)
  Receive Date: 20140422
  Receipt Date: 20140422
  Transmission Date: 20141212
  Serious: Yes (Hospitalization)
  Sender: FDA-Public Use
  Company Number: KR-ROCHE-1375476

PATIENT
  Age: 53 Year
  Sex: Female
  Weight: 65.2 kg

DRUGS (7)
  1. RITUXIMAB [Suspect]
     Indication: MALIGNANT LYMPHOID NEOPLASM
     Dosage: LAST DOSE PRIOR TO SAE-29/OCT/2013
     Route: 042
     Dates: start: 20131029
  2. NOLTEC [Concomitant]
     Route: 065
     Dates: start: 20140326
  3. MUTERAN [Concomitant]
     Dosage: DOSE-26.8/@
     Route: 065
     Dates: start: 20140328, end: 20140330
  4. PENIRAMIN [Concomitant]
     Dosage: DOSE- 1/@
     Route: 065
     Dates: start: 20140328, end: 20140328
  5. NUTRIFLEX [Concomitant]
     Dosage: DOSE- 1/B
     Route: 065
     Dates: start: 20140327, end: 20140327
  6. VIREAD [Concomitant]
     Route: 065
     Dates: start: 20140326
  7. VIREAD [Concomitant]
     Route: 065
     Dates: start: 20140303

REACTIONS (2)
  - Hepatitis B [Not Recovered/Not Resolved]
  - Hepatitis toxic [Not Recovered/Not Resolved]
